FAERS Safety Report 21787757 (Version 1)
Quarter: 2022Q4

REPORT INFORMATION
  Report Type: Spontaneous
  Country: ES (occurrence: ES)
  Receive Date: 20221228
  Receipt Date: 20221228
  Transmission Date: 20230112
  Serious: Yes (Other)
  Sender: FDA-Public Use
  Company Number: ES-MLMSERVICE-2022121239753922

PATIENT
  Age: 63 Year

DRUGS (11)
  1. QUETIAPINE [Suspect]
     Active Substance: QUETIAPINE
     Indication: Histrionic personality disorder
  2. SIMVASTATIN [Concomitant]
     Active Substance: SIMVASTATIN
  3. DIAZEPAM [Concomitant]
     Active Substance: DIAZEPAM
     Indication: Histrionic personality disorder
  4. OMEPRAZOLE [Concomitant]
     Active Substance: OMEPRAZOLE
  5. FLUTICASONE PROPIONATE\SALMETEROL XINAFOATE [Concomitant]
     Active Substance: FLUTICASONE PROPIONATE\SALMETEROL XINAFOATE
  6. CELECOXIB [Concomitant]
     Active Substance: CELECOXIB
  7. CINITAPRIDE TARTRATE [Concomitant]
     Active Substance: CINITAPRIDE TARTRATE
  8. LEVOSULPIRIDE [Concomitant]
     Active Substance: LEVOSULPIRIDE
  9. VENLAFAXINE [Concomitant]
     Active Substance: VENLAFAXINE HYDROCHLORIDE
     Indication: Histrionic personality disorder
  10. FENTANYL [Concomitant]
     Active Substance: FENTANYL
  11. RUPATADINE FUMARATE [Concomitant]
     Active Substance: RUPATADINE FUMARATE

REACTIONS (2)
  - Colitis ischaemic [Recovered/Resolved]
  - Off label use [Unknown]
